FAERS Safety Report 9871444 (Version 1)
Quarter: 2014Q1

REPORT INFORMATION
  Report Type: Spontaneous
  Country: US (occurrence: None)
  Receive Date: 20140204
  Receipt Date: 20140204
  Transmission Date: 20141002
  Serious: Yes (Hospitalization)
  Sender: FDA-Public Use
  Company Number: None

PATIENT
  Age: 68 Year
  Sex: Male

DRUGS (1)
  1. CYMBALTA [Suspect]

REACTIONS (6)
  - Dyspnoea [None]
  - Decreased appetite [None]
  - Diarrhoea [None]
  - Hypertension [None]
  - Flushing [None]
  - Tremor [None]
